FAERS Safety Report 11866645 (Version 2)
Quarter: 2017Q1

REPORT INFORMATION
  Report Type: Spontaneous
  Country: US (occurrence: US)
  Receive Date: 20151224
  Receipt Date: 20170330
  Transmission Date: 20170428
  Serious: Yes (Other)
  Sender: FDA-Public Use
  Company Number: US-ACCORD-036398

PATIENT
  Age: 58 Year
  Sex: Male
  Weight: 81.82 kg

DRUGS (2)
  1. QUETIAPINE. [Suspect]
     Active Substance: QUETIAPINE
     Indication: BIPOLAR DISORDER
     Route: 048
     Dates: start: 201409, end: 201512
  2. ATIVAN [Concomitant]
     Active Substance: LORAZEPAM

REACTIONS (7)
  - Tremor [Unknown]
  - Headache [Not Recovered/Not Resolved]
  - Seizure [Recovered/Resolved]
  - Insomnia [Not Recovered/Not Resolved]
  - Hyperhidrosis [Recovered/Resolved]
  - Withdrawal syndrome [Recovering/Resolving]
  - Tinnitus [Not Recovered/Not Resolved]
